FAERS Safety Report 11103117 (Version 1)
Quarter: 2015Q2

REPORT INFORMATION
  Report Type: Spontaneous
  Country: GB (occurrence: None)
  Receive Date: 20150505
  Receipt Date: 20150505
  Transmission Date: 20150821
  Serious: Yes (Other)
  Sender: FDA-Public Use
  Company Number: 2015GB_BP002624

PATIENT
  Age: 78 Year
  Sex: Male

DRUGS (2)
  1. FINASTERIDE (FINASTERIDE) [Suspect]
     Active Substance: FINASTERIDE
     Indication: PRODUCT USED FOR UNKNOWN INDICATION
     Dates: start: 20150408
  2. SOFRADEX (FRAMYCETIN SULPHATE, GRAMICIDIN, DEXAMETHASONE SODIUM METASULFOBENZOATE) [Concomitant]

REACTIONS (2)
  - Nausea [None]
  - Depression [None]

NARRATIVE: CASE EVENT DATE: 20150411
